FAERS Safety Report 6803066-4 (Version None)
Quarter: 2010Q2

REPORT INFORMATION
  Report Type: 
  Country: None (occurrence: None)
  Receive Date: 20100628
  Receipt Date: 20100618
  Transmission Date: 20101027
  Serious: Yes (Hospitalization, Other)
  Sender: FDA-Public Use
  Company Number: US-ASTRAZENECA-2010SE28684

PATIENT
  Age: 67 Year
  Sex: Female
  Weight: 68 kg

DRUGS (12)
  1. SEROQUEL [Suspect]
     Indication: MANIA
     Route: 048
     Dates: start: 20100426, end: 20100101
  2. CHANTIX [Suspect]
     Indication: EX-TOBACCO USER
     Route: 048
     Dates: start: 20070301
  3. CHANTIX [Suspect]
     Route: 048
     Dates: start: 20070901
  4. CHANTIX [Suspect]
     Route: 048
     Dates: start: 20100526, end: 20100530
  5. CHANTIX [Suspect]
     Route: 048
     Dates: start: 20100101
  6. LEVOTHYROXINE SODIUM [Concomitant]
     Indication: HYPOTHYROIDISM
  7. DEPAKOTE [Concomitant]
     Indication: BIPOLAR DISORDER
  8. GABAPENTIN [Concomitant]
     Indication: SPINAL DISORDER
  9. GABAPENTIN [Concomitant]
     Indication: NERVE INJURY
  10. DYPHYLLINE [Concomitant]
     Indication: LUNG NEOPLASM MALIGNANT
     Dosage: DAILY
  11. SYMBICORT [Concomitant]
     Indication: LUNG NEOPLASM MALIGNANT
     Dosage: 801/4.5 2 PUFFS
     Route: 055
  12. UBIQUINON [Concomitant]

REACTIONS (11)
  - CONFUSIONAL STATE [None]
  - CORNEAL SCAR [None]
  - DRY EYE [None]
  - EYE INFECTION VIRAL [None]
  - EYE PAIN [None]
  - INTERVERTEBRAL DISC DEGENERATION [None]
  - LUNG DISORDER [None]
  - MANIA [None]
  - PHOTOPHOBIA [None]
  - SPINAL DISORDER [None]
  - WEIGHT INCREASED [None]
